FAERS Safety Report 7568206-0 (Version None)
Quarter: 2011Q2

REPORT INFORMATION
  Report Type: 
  Country: None (occurrence: None)
  Receive Date: 20110623
  Receipt Date: 20110617
  Transmission Date: 20111010
  Serious: Yes (Other)
  Sender: FDA-Public Use
  Company Number: NL-AMGEN-NLDSP2011025632

PATIENT
  Age: 73 Year
  Sex: Female

DRUGS (2)
  1. ENBREL [Suspect]
     Indication: RHEUMATOID ARTHRITIS
     Dosage: 50 MG, WEEKLY
  2. MTX                                /00113801/ [Concomitant]
     Dosage: UNK

REACTIONS (5)
  - UPPER RESPIRATORY TRACT INFECTION [None]
  - DYSPNOEA [None]
  - PNEUMONIA [None]
  - FATIGUE [None]
  - UPPER LIMB FRACTURE [None]
